FAERS Safety Report 13116056 (Version 2)
Quarter: 2017Q1

REPORT INFORMATION
  Report Type: Spontaneous
  Country: US (occurrence: US)
  Receive Date: 20170116
  Receipt Date: 20170213
  Transmission Date: 20170428
  Serious: No
  Sender: FDA-Public Use
  Company Number: US-TAKEDA-2017TUS000605

PATIENT
  Sex: Male
  Weight: 54.42 kg

DRUGS (1)
  1. ROZEREM [Suspect]
     Active Substance: RAMELTEON
     Indication: INITIAL INSOMNIA
     Dosage: 8 MG, UNK
     Route: 048
     Dates: start: 20161228, end: 20170104

REACTIONS (1)
  - Drug ineffective [Not Recovered/Not Resolved]
